FAERS Safety Report 21558268 (Version 5)
Quarter: 2025Q1

REPORT INFORMATION
  Report Type: Report from Study
  Country: DE (occurrence: DE)
  Receive Date: 20221107
  Receipt Date: 20250129
  Transmission Date: 20250409
  Serious: Yes (Hospitalization)
  Sender: ROCHE
  Company Number: DE-ROCHE-3213714

PATIENT
  Age: 36 Year
  Sex: Female

DRUGS (11)
  1. OCREVUS [Suspect]
     Active Substance: OCRELIZUMAB
     Indication: Relapsing-remitting multiple sclerosis
     Dosage: 16/NOV/2021 (DATE OF THE 6TH MAINTENANCE DOSE), 175 MG EVERY 6 MONTHS?28/JUN/2022 (DATE OF THE 7TH M
     Route: 040
     Dates: start: 20181115
  2. PREGABALIN [Concomitant]
     Active Substance: PREGABALIN
  3. FOLIC ACID [Concomitant]
     Active Substance: FOLIC ACID
  4. ESCITALOPRAM [Concomitant]
     Active Substance: ESCITALOPRAM OXALATE
  5. SOLIFENACIN [Concomitant]
     Active Substance: SOLIFENACIN
  6. VITAMIN D3 [Concomitant]
     Active Substance: CHOLECALCIFEROL
  7. MIRABEGRON [Concomitant]
     Active Substance: MIRABEGRON
  8. CANDESARTAN [Concomitant]
     Active Substance: CANDESARTAN
  9. CARBAMAZEPINE [Concomitant]
     Active Substance: CARBAMAZEPINE
  10. ORTOTON FORTE [Concomitant]
  11. ESOMEPRAZOLE [Concomitant]
     Active Substance: ESOMEPRAZOLE

REACTIONS (7)
  - Migraine [Recovered/Resolved]
  - COVID-19 [Recovered/Resolved]
  - Functional gastrointestinal disorder [Not Recovered/Not Resolved]
  - Large intestine polyp [Recovered/Resolved]
  - Sensory disturbance [Not Recovered/Not Resolved]
  - Neck pain [Not Recovered/Not Resolved]
  - Suicidal ideation [Recovered/Resolved]

NARRATIVE: CASE EVENT DATE: 20211116
